FAERS Safety Report 6367656-8 (Version None)
Quarter: 2009Q3

REPORT INFORMATION
  Report Type: 
  Country: None (occurrence: None)
  Receive Date: 20090921
  Receipt Date: 20090914
  Transmission Date: 20100115
  Serious: Yes (Hospitalization)
  Sender: FDA-Public Use
  Company Number: FR-ROCHE-656262

PATIENT
  Sex: Male

DRUGS (4)
  1. RIVOTRIL [Suspect]
     Dosage: DOSE: 3 DROPS: 0.3 MG FREQUENCY: DAILY
     Route: 048
     Dates: start: 20090529, end: 20090529
  2. NOZINAN [Suspect]
     Dosage: DOSE: 100 DROPS FREQUENCY: DAILY
     Route: 048
     Dates: start: 20090529, end: 20090529
  3. LEPTICUR [Concomitant]
  4. CLOPIXOL [Concomitant]

REACTIONS (2)
  - COMA [None]
  - MIOSIS [None]
